FAERS Safety Report 19847196 (Version 1)
Quarter: 2021Q3

REPORT INFORMATION
  Report Type: Spontaneous
  Country: US (occurrence: US)
  Receive Date: 20210917
  Receipt Date: 20210917
  Transmission Date: 20211014
  Serious: Yes (Hospitalization)
  Sender: FDA-Public Use
  Company Number: US-ARBOR PHARMACEUTICALS, LLC-US-2021ARB001067

PATIENT
  Age: 18 Year
  Sex: Female

DRUGS (16)
  1. PERPHENAZINE. [Suspect]
     Active Substance: PERPHENAZINE
     Dosage: 18 MG, BID
  2. LURASIDONE [Suspect]
     Active Substance: LURASIDONE
     Dosage: UNK, DOSE TITRATED UP OVER A PERIOD OF 6 WEEKS
  3. LURASIDONE [Suspect]
     Active Substance: LURASIDONE
     Dosage: 80 MG, BID
  4. PERPHENAZINE. [Suspect]
     Active Substance: PERPHENAZINE
     Dosage: 2 MG, BID
  5. PERPHENAZINE. [Suspect]
     Active Substance: PERPHENAZINE
     Dosage: 12 MG, BID
  6. PERPHENAZINE. [Suspect]
     Active Substance: PERPHENAZINE
     Dosage: UNK, WEANED OFF
  7. PERPHENAZINE. [Suspect]
     Active Substance: PERPHENAZINE
     Dosage: 2 MG, BID
  8. LURASIDONE [Suspect]
     Active Substance: LURASIDONE
     Dosage: 20 MG, BID
  9. CITALOPRAM [Concomitant]
     Active Substance: CITALOPRAM HYDROBROMIDE
     Dosage: UNK, WEANED OFF
  10. OLANZAPINE. [Concomitant]
     Active Substance: OLANZAPINE
     Indication: PRODUCT USED FOR UNKNOWN INDICATION
     Dosage: 5 MG, BID
  11. LURASIDONE [Suspect]
     Active Substance: LURASIDONE
     Indication: PSYCHOTIC SYMPTOM
     Dosage: 20 MG, BID
  12. PERPHENAZINE. [Suspect]
     Active Substance: PERPHENAZINE
     Indication: PSYCHOTIC SYMPTOM
     Dosage: 16 MG, BID
  13. PERPHENAZINE. [Suspect]
     Active Substance: PERPHENAZINE
     Dosage: 16 MG, BID
  14. CITALOPRAM [Concomitant]
     Active Substance: CITALOPRAM HYDROBROMIDE
     Indication: PRODUCT USED FOR UNKNOWN INDICATION
     Dosage: 20 MG, QD
  15. PERPHENAZINE. [Suspect]
     Active Substance: PERPHENAZINE
     Dosage: 12 MG, BID
  16. OLANZAPINE. [Concomitant]
     Active Substance: OLANZAPINE
     Dosage: 20 MG, QD

REACTIONS (3)
  - Drug withdrawal syndrome [Unknown]
  - Nausea [Recovered/Resolved]
  - Vomiting [Recovering/Resolving]
